FAERS Safety Report 4464663-7 (Version None)
Quarter: 2004Q4

REPORT INFORMATION
  Report Type: 
  Country: None (occurrence: None)
  Receive Date: 20041004
  Receipt Date: 20040922
  Transmission Date: 20050328
  Serious: Yes (Other)
  Sender: FDA-Public Use
  Company Number: JP-BRISTOL-MYERS SQUIBB COMPANY-12717120

PATIENT
  Age: 76 Year
  Sex: Male

DRUGS (4)
  1. GATIFLO TABS 100 MG [Suspect]
     Indication: C-REACTIVE PROTEIN INCREASED
     Route: 048
     Dates: start: 20040909, end: 20040912
  2. PL [Concomitant]
     Route: 048
     Dates: start: 20040909, end: 20040909
  3. MUCODYNE [Concomitant]
     Dosage: DOSAGE FORM: TABLET
     Route: 048
     Dates: start: 20040909, end: 20040909
  4. DOPAMINE HCL [Concomitant]
     Route: 041

REACTIONS (3)
  - ANOREXIA [None]
  - DEPRESSED LEVEL OF CONSCIOUSNESS [None]
  - HYPOGLYCAEMIA [None]
